FAERS Safety Report 19158271 (Version 3)
Quarter: 2023Q1

REPORT INFORMATION
  Report Type: Spontaneous
  Country: JP (occurrence: JP)
  Receive Date: 20210420
  Receipt Date: 20230330
  Transmission Date: 20230418
  Serious: Yes (Death, Hospitalization, Other)
  Sender: FDA-Public Use
  Company Number: JP-MSD-M2021-01960

PATIENT
  Age: 80 Year
  Sex: Male
  Weight: 54 kg

DRUGS (22)
  1. KEYTRUDA [Suspect]
     Active Substance: PEMBROLIZUMAB
     Indication: Lung squamous cell carcinoma stage IV
     Dosage: 200 MILLIGRAM, Q3W
     Route: 041
     Dates: start: 20200812, end: 20201112
  2. CARBOPLATIN [Concomitant]
     Active Substance: CARBOPLATIN
     Indication: Lung squamous cell carcinoma stage IV
     Dosage: 350 MILLIGRAM, EVERY 4 WEEKS
     Route: 041
     Dates: start: 20200812, end: 20201112
  3. PACLITAXEL [Concomitant]
     Active Substance: PACLITAXEL
     Indication: Lung squamous cell carcinoma stage IV
     Dosage: 149 MILLIGRAM/3 TIMES IN 4 WEEKS
     Route: 041
     Dates: start: 20200812, end: 20201126
  4. AMBROXOL HYDROCHLORIDE [Concomitant]
     Active Substance: AMBROXOL HYDROCHLORIDE
     Indication: Lung neoplasm malignant
     Dosage: 45 MILLIGRAM, QD
     Route: 048
     Dates: start: 20200708, end: 20201220
  5. GLYCOPYRRONIUM\INDACATEROL [Concomitant]
     Active Substance: GLYCOPYRRONIUM\INDACATEROL
     Indication: Chronic obstructive pulmonary disease
     Dosage: 1 DOSAGE FORM, QD
     Dates: start: 20200708, end: 20210113
  6. ROSUVASTATIN CALCIUM [Concomitant]
     Active Substance: ROSUVASTATIN CALCIUM
     Indication: Hypertriglyceridaemia
     Dosage: 5 MILLIGRAM, QD
     Route: 048
     Dates: start: 2019, end: 20201220
  7. ICOSAPENT ETHYL [Concomitant]
     Active Substance: ICOSAPENT ETHYL
     Indication: Hypertriglyceridaemia
     Dosage: 600 MILLIGRAM, TID
     Route: 048
     Dates: start: 2019, end: 20201220
  8. XARELTO [Concomitant]
     Active Substance: RIVAROXABAN
     Indication: Atrial fibrillation
     Dosage: 10 MILLIGRAM, QD
     Route: 048
     Dates: start: 20200713, end: 20201220
  9. PILSICAINIDE HYDROCHLORIDE [Concomitant]
     Active Substance: PILSICAINIDE HYDROCHLORIDE
     Indication: Atrial fibrillation
     Dosage: 25 MILLIGRAM, BID
     Route: 048
     Dates: start: 20200713, end: 20201220
  10. LOXOPROFEN SODIUM [Concomitant]
     Active Substance: LOXOPROFEN SODIUM
     Indication: Compression fracture
     Dosage: 60 MILLIGRAM, TID
     Route: 048
     Dates: start: 20200803, end: 20201220
  11. LOXOPROFEN SODIUM [Concomitant]
     Active Substance: LOXOPROFEN SODIUM
     Indication: Metastases to bone
  12. LOXOPROFEN SODIUM [Concomitant]
     Active Substance: LOXOPROFEN SODIUM
     Indication: Spinal stenosis
  13. LYRICA [Concomitant]
     Active Substance: PREGABALIN
     Indication: Compression fracture
     Dosage: 25 MILLIGRAM, BID
     Route: 048
     Dates: start: 20200803, end: 20201220
  14. LYRICA [Concomitant]
     Active Substance: PREGABALIN
     Indication: Metastases to bone
  15. LYRICA [Concomitant]
     Active Substance: PREGABALIN
     Indication: Spinal stenosis
  16. BISOPROLOL FUMARATE [Concomitant]
     Active Substance: BISOPROLOL FUMARATE
     Indication: Atrial fibrillation
     Dosage: 0.625 MILLIGRAM, BID
     Route: 048
     Dates: start: 20200713, end: 20201220
  17. REBAMIPIDE [Concomitant]
     Active Substance: REBAMIPIDE
     Indication: Compression fracture
     Dosage: 100 MILLIGRAM, TID
     Route: 048
     Dates: start: 20200803, end: 20201220
  18. REBAMIPIDE [Concomitant]
     Active Substance: REBAMIPIDE
     Indication: Metastases to bone
  19. REBAMIPIDE [Concomitant]
     Active Substance: REBAMIPIDE
     Indication: Spinal stenosis
  20. CALCIUM CARBONATE\CHOLECALCIFEROL\MAGNESIUM CARBONATE [Concomitant]
     Active Substance: CALCIUM CARBONATE\CHOLECALCIFEROL\MAGNESIUM CARBONATE
     Indication: Metastases to bone
     Dosage: 2 DOSAGE FORM, QD
     Route: 048
     Dates: start: 20200813, end: 20201220
  21. ASPIRIN [Concomitant]
     Active Substance: ASPIRIN
     Indication: Cerebral infarction
     Dosage: 100 MILLIGRAM, QD
     Route: 048
     Dates: start: 2018, end: 20201220
  22. LANSOPRAZOLE [Concomitant]
     Active Substance: LANSOPRAZOLE
     Indication: Cerebral infarction
     Dosage: 15 MILLIGRAM, QD
     Route: 048
     Dates: start: 2018, end: 20210112

REACTIONS (7)
  - Interstitial lung disease [Fatal]
  - Cerebral infarction [Recovering/Resolving]
  - Oesophagobronchial fistula [Unknown]
  - Immune-mediated hypothyroidism [Recovered/Resolved]
  - Pseudomonas infection [Fatal]
  - Hepatic function abnormal [Recovered/Resolved]
  - Hepatic function abnormal [Unknown]

NARRATIVE: CASE EVENT DATE: 20200817
